FAERS Safety Report 9415549 (Version 1)
Quarter: 2013Q3

REPORT INFORMATION
  Report Type: Spontaneous
  Country: FR (occurrence: FR)
  Receive Date: 20130723
  Receipt Date: 20130723
  Transmission Date: 20140515
  Serious: Yes (Hospitalization)
  Sender: FDA-Public Use
  Company Number: FR-BAYER-2013-088947

PATIENT
  Age: 60 Year
  Sex: Male

DRUGS (1)
  1. LEVITRA [Suspect]
     Dosage: UNK
     Route: 048
     Dates: start: 20130602

REACTIONS (1)
  - Cerebral haematoma [Recovering/Resolving]
